FAERS Safety Report 12322632 (Version 1)
Quarter: 2016Q2

REPORT INFORMATION
  Report Type: Spontaneous
  Country: US (occurrence: US)
  Receive Date: 20160502
  Receipt Date: 20160502
  Transmission Date: 20160815
  Serious: No
  Sender: FDA-Public Use
  Company Number: US-PFIZER INC-2016197524

PATIENT
  Sex: Male

DRUGS (3)
  1. ACETAMINOPHEN. [Interacting]
     Active Substance: ACETAMINOPHEN
     Dosage: UNK
  2. IBUPROFEN. [Interacting]
     Active Substance: IBUPROFEN
     Dosage: UNK
  3. VIAGRA [Suspect]
     Active Substance: SILDENAFIL CITRATE
     Dosage: UNK

REACTIONS (1)
  - Drug interaction [Unknown]
